FAERS Safety Report 9225277 (Version 1)
Quarter: 2013Q2

REPORT INFORMATION
  Report Type: Spontaneous
  Country: NL (occurrence: NL)
  Receive Date: 20130411
  Receipt Date: 20130411
  Transmission Date: 20140414
  Serious: Yes (Death)
  Sender: FDA-Public Use
  Company Number: NL-ROCHE-1205626

PATIENT
  Sex: Female

DRUGS (3)
  1. ZELBORAF [Suspect]
     Indication: PRODUCT USED FOR UNKNOWN INDICATION
     Route: 048
     Dates: start: 20120727
  2. ZELBORAF [Suspect]
     Dosage: DOSE REDUCED
     Route: 048
  3. ZELBORAF [Suspect]
     Route: 065

REACTIONS (6)
  - Disease progression [Fatal]
  - Malaise [Unknown]
  - Nausea [Not Recovered/Not Resolved]
  - Diarrhoea [Not Recovered/Not Resolved]
  - Fatigue [Not Recovered/Not Resolved]
  - Vomiting [Not Recovered/Not Resolved]
